FAERS Safety Report 6166530-X (Version None)
Quarter: 2009Q2

REPORT INFORMATION
  Report Type: 
  Country: None (occurrence: None)
  Receive Date: 20090424
  Receipt Date: 20090415
  Transmission Date: 20091009
  Serious: Yes (Hospitalization)
  Sender: FDA-Public Use
  Company Number: ES-ELI_LILLY_AND_COMPANY-ES200904003437

PATIENT
  Age: 72 Year
  Sex: Female

DRUGS (9)
  1. FORTEO [Suspect]
     Indication: OSTEOPOROSIS
     Dosage: 20 UG, UNKNOWN
     Route: 058
     Dates: start: 20071201, end: 20090307
  2. EMCONCOR /00802601/ [Concomitant]
     Dosage: UNK, UNKNOWN
     Route: 065
  3. ADIRO [Concomitant]
     Dosage: UNK, UNKNOWN
     Route: 065
  4. ALPRAX [Concomitant]
     Dosage: UNK, UNKNOWN
     Route: 065
  5. PREVENCOR [Concomitant]
     Dosage: UNK, UNKNOWN
     Route: 065
  6. DURAGESIC-100 [Concomitant]
     Dosage: UNK, UNKNOWN
     Route: 065
  7. TRANKIMAZIN [Concomitant]
     Dosage: UNK, UNKNOWN
     Route: 065
  8. SOMAZINA [Concomitant]
     Dosage: UNK, UNKNOWN
     Route: 065
  9. VOLTAREN [Concomitant]
     Dosage: UNK, UNKNOWN
     Route: 065

REACTIONS (6)
  - GASTROINTESTINAL INFECTION [None]
  - HEMIPLEGIA [None]
  - LACUNAR INFARCTION [None]
  - SENSATION OF HEAVINESS [None]
  - VIRAL INFECTION [None]
  - VOMITING [None]
